FAERS Safety Report 22852964 (Version 2)
Quarter: 2023Q4

REPORT INFORMATION
  Report Type: Report from Study
  Country: US (occurrence: US)
  Receive Date: 20230823
  Receipt Date: 20231009
  Transmission Date: 20240109
  Serious: Yes (Hospitalization)
  Sender: FDA-Public Use
  Company Number: US-002147023-NVSC2023US172539

PATIENT
  Age: 15 Year
  Sex: Female
  Weight: 32.3 kg

DRUGS (3)
  1. KYMRIAH [Suspect]
     Active Substance: TISAGENLECLEUCEL
     Indication: Lymphocyte adoptive therapy
     Dosage: 6.74 X10E7, 10 PERCENT
     Route: 042
     Dates: start: 20171010
  2. KYMRIAH [Suspect]
     Active Substance: TISAGENLECLEUCEL
     Dosage: 6.74 X10E7, 30 PERCENT
     Route: 042
     Dates: start: 20171011, end: 20171011
  3. CHOLECALCIFEROL [Concomitant]
     Active Substance: CHOLECALCIFEROL
     Indication: Supplementation therapy
     Dosage: 1000 UNITS DAILY
     Route: 048
     Dates: start: 20170620

REACTIONS (3)
  - Diabetic ketoacidosis [Recovered/Resolved]
  - Gastric perforation [Recovered/Resolved]
  - Pleural effusion [Recovered/Resolved]

NARRATIVE: CASE EVENT DATE: 20230802
